FAERS Safety Report 7375307-9 (Version None)
Quarter: 2011Q1

REPORT INFORMATION
  Report Type: 
  Country: None (occurrence: None)
  Receive Date: 20110325
  Receipt Date: 20110324
  Transmission Date: 20110831
  Serious: Yes (Other)
  Sender: FDA-Public Use
  Company Number: PL-ROCHE-767282

PATIENT
  Age: 40 Year
  Sex: Female

DRUGS (2)
  1. TRASTUZUMAB [Concomitant]
     Dosage: STOP DATE: JAN 2011
     Dates: start: 20100101
  2. XELODA [Suspect]
     Indication: BREAST CANCER
     Route: 065

REACTIONS (1)
  - DISEASE PROGRESSION [None]
